FAERS Safety Report 8909405 (Version 3)
Quarter: 2013Q1

REPORT INFORMATION
  Report Type: Spontaneous
  Country: US (occurrence: US)
  Receive Date: 20121115
  Receipt Date: 20130110
  Transmission Date: 20140127
  Serious: Yes (Other)
  Sender: FDA-Public Use
  Company Number: US-JNJFOC-20121106511

PATIENT
  Age: 62 Year
  Sex: Female
  Weight: 71.67 kg

DRUGS (1)
  1. EXTRA STRENGTH TYLENOL RAPID RELEASE [Suspect]
     Indication: PRODUCT USED FOR UNKNOWN INDICATION
     Dosage: 2 GELCAPS A DAY, 1 GELCAP TWICE A DAY
     Route: 048
     Dates: start: 19991130

REACTIONS (2)
  - Dependence [Unknown]
  - Intentional drug misuse [Unknown]
